FAERS Safety Report 23180018 (Version 1)
Quarter: 2023Q4

REPORT INFORMATION
  Report Type: Spontaneous
  Country: FR (occurrence: FR)
  Receive Date: 20231114
  Receipt Date: 20231114
  Transmission Date: 20240110
  Serious: Yes (Hospitalization, Other)
  Sender: FDA-Public Use
  Company Number: None

PATIENT
  Age: 74 Year
  Sex: Female
  Weight: 115 kg

DRUGS (2)
  1. DOXORUBICIN HYDROCHLORIDE [Suspect]
     Active Substance: DOXORUBICIN HYDROCHLORIDE
     Indication: Ovarian epithelial cancer
     Dosage: 60 MG, ONCE A MONTH
     Route: 042
     Dates: start: 20180103, end: 20180522
  2. AVASTIN [Suspect]
     Active Substance: BEVACIZUMAB
     Indication: Ovarian epithelial cancer
     Dosage: 1100 MG, EVERY 2 WK, (MAMMAL/HAMSTER/CHO CELLS)
     Route: 042
     Dates: start: 20180103, end: 20180522

REACTIONS (1)
  - Thrombotic microangiopathy [Not Recovered/Not Resolved]
